FAERS Safety Report 8217826-9 (Version None)
Quarter: 2012Q1

REPORT INFORMATION
  Report Type: 
  Country: None (occurrence: None)
  Receive Date: 20120315
  Receipt Date: 20120301
  Transmission Date: 20120608
  Serious: Yes (Disabling)
  Sender: FDA-Public Use
  Company Number: 2012-00377

PATIENT
  Age: 72 Year
  Sex: Female
  Weight: 82.55 kg

DRUGS (15)
  1. BENDROFLUMETHIAZIDE (UNKNWON) [Concomitant]
  2. BECLOMETASONDE DIPROPIONATE (CLENIL MODULITE) (UNKNWON) [Concomitant]
  3. CALCIUM (CALCIUM CARBONATE) (UNKNWON) [Concomitant]
  4. DICLOFENAC DIETHYLAMINE + DICLOFENAC FREE ACID +DICLOFENAC POTASSIUM + [Concomitant]
  5. ALENDRONIC ACID (UNKNWON) [Concomitant]
  6. FOLIC ACID (UNKNWON) [Concomitant]
  7. HYPROMELLOSE, (UNKNWON) [Concomitant]
  8. VALSARTAN (UNKNWON) [Concomitant]
  9. SALBUTAMOL + SALBUTAMOL BASE + SALBUTAMOL SULPHATE + SALBUTAMOL SULPHA [Concomitant]
  10. BECLOMETASONE (UNKNWON) [Concomitant]
  11. DOXYCYCLINE (UNKNWON) [Concomitant]
  12. LANSOPRAZOLE(UNKNWON) [Concomitant]
  13. SIMVASTATIN [Suspect]
     Indication: PRODUCT USED FOR UNKNOWN INDICATION
     Dates: start: 20111027
  14. METHOTREXATE (UNKNWON) [Concomitant]
  15. PREDNISOLONE (UNKNWON) [Concomitant]

REACTIONS (1)
  - PAIN [None]
